FAERS Safety Report 6823694-X (Version None)
Quarter: 2010Q3

REPORT INFORMATION
  Report Type: 
  Country: None (occurrence: None)
  Receive Date: 20100708
  Receipt Date: 20060818
  Transmission Date: 20110219
  Serious: No
  Sender: FDA-Public Use
  Company Number: US-PFIZER INC-2006098228

PATIENT
  Sex: Female
  Weight: 58.97 kg

DRUGS (6)
  1. CHANTIX [Suspect]
     Indication: SMOKING CESSATION THERAPY
     Dosage: DAILY
     Route: 065
     Dates: start: 20060701
  2. ALL OTHER NON-THERAPEUTIC PRODUCTS [Suspect]
     Route: 048
     Dates: start: 20060817
  3. CLONAZEPAM [Concomitant]
  4. ZONEGRAN [Concomitant]
  5. ABILIFY [Concomitant]
  6. REQUIP [Concomitant]

REACTIONS (4)
  - DIARRHOEA [None]
  - MALAISE [None]
  - TREMOR [None]
  - VOMITING [None]
